FAERS Safety Report 22109355 (Version 2)
Quarter: 2023Q1

REPORT INFORMATION
  Report Type: Spontaneous
  Country: DE (occurrence: DE)
  Receive Date: 20230317
  Receipt Date: 20230321
  Transmission Date: 20230418
  Serious: Yes (Hospitalization, Other)
  Sender: FDA-Public Use
  Company Number: DE-SA-2023SA084846

PATIENT
  Age: 2 Year
  Sex: Male

DRUGS (5)
  1. ELOCTATE [Suspect]
     Active Substance: EFMOROCTOCOG ALFA
     Dosage: 750 IU, TIW
     Route: 065
     Dates: start: 20220518
  2. ELOCTATE [Suspect]
     Active Substance: EFMOROCTOCOG ALFA
     Dosage: 750 IU, TIW
     Route: 065
     Dates: start: 20220518
  3. ELOCTATE [Suspect]
     Active Substance: EFMOROCTOCOG ALFA
     Dosage: 1000 IU, TIW
     Route: 065
     Dates: start: 202303
  4. ELOCTATE [Suspect]
     Active Substance: EFMOROCTOCOG ALFA
     Dosage: 1000 IU, TIW
     Route: 065
     Dates: start: 202303
  5. NEXIUM I.V. [Concomitant]
     Active Substance: ESOMEPRAZOLE SODIUM
     Dosage: 1 DF, QD

REACTIONS (4)
  - Gastritis [Unknown]
  - Haematemesis [Recovered/Resolved]
  - Gastric ulcer [Unknown]
  - Scarlet fever [Unknown]

NARRATIVE: CASE EVENT DATE: 20230301
